FAERS Safety Report 20532116 (Version 1)
Quarter: 2022Q1

REPORT INFORMATION
  Report Type: Spontaneous
  Country: US (occurrence: None)
  Receive Date: 20220301
  Receipt Date: 20220301
  Transmission Date: 20220423
  Serious: Yes (Hospitalization)
  Sender: FDA-Public Use
  Company Number: None

PATIENT
  Sex: Female
  Weight: 70.5 kg

DRUGS (2)
  1. AZACITIDINE [Suspect]
     Active Substance: AZACITIDINE
  2. VENETOCLAX [Suspect]
     Active Substance: VENETOCLAX

REACTIONS (3)
  - Diarrhoea [None]
  - Cough [None]
  - Neutropenic colitis [None]

NARRATIVE: CASE EVENT DATE: 20220223
